FAERS Safety Report 9263682 (Version 5)
Quarter: 2014Q3

REPORT INFORMATION
  Report Type: Spontaneous
  Country: US (occurrence: US)
  Receive Date: 20130430
  Receipt Date: 20140919
  Transmission Date: 20150326
  Serious: No
  Sender: FDA-Public Use
  Company Number: US-PFIZER INC-2013131379

PATIENT
  Age: 82 Year
  Sex: Male

DRUGS (3)
  1. INLYTA [Suspect]
     Active Substance: AXITINIB
     Indication: RENAL CANCER
     Dosage: 5 MG, UNK
     Route: 048
     Dates: start: 20130311
  2. INLYTA [Suspect]
     Active Substance: AXITINIB
     Dosage: 5 MG, 2X/DAY
     Route: 048
     Dates: start: 201304
  3. INLYTA [Suspect]
     Active Substance: AXITINIB
     Dosage: 2 MG, 2X/DAY (1 MG TABLET. 2 TABS BID)

REACTIONS (5)
  - Dysphonia [Unknown]
  - Fatigue [Unknown]
  - Rash [Unknown]
  - Dry skin [Unknown]
  - Pain of skin [Unknown]
